FAERS Safety Report 17100256 (Version 2)
Quarter: 2020Q3

REPORT INFORMATION
  Report Type: Report from Study
  Country: US (occurrence: US)
  Receive Date: 20191202
  Receipt Date: 20200710
  Transmission Date: 20201102
  Serious: Yes (Death)
  Sender: FDA-Public Use
  Company Number: US-PFIZER INC-2019517824

PATIENT

DRUGS (2)
  1. DOCETAXEL. [Suspect]
     Active Substance: DOCETAXEL
     Indication: TRANSITIONAL CELL CARCINOMA
     Dosage: 75 MG/M2, (DOCETAXEL 75 MG/M? (60 MG/M? IN KOREA, TAIWAN, AND JAPAN) ON DAY 1 OF A 21?DAY CYCLE)
     Route: 042
  2. PLACEBO [Suspect]
     Active Substance: UNSPECIFIED INGREDIENT
     Indication: TRANSITIONAL CELL CARCINOMA

REACTIONS (1)
  - Asthenia [Fatal]
